FAERS Safety Report 7479480-3 (Version None)
Quarter: 2011Q2

REPORT INFORMATION
  Report Type: 
  Country: None (occurrence: None)
  Receive Date: 20110513
  Receipt Date: 20110502
  Transmission Date: 20111010
  Serious: Yes (Other)
  Sender: FDA-Public Use
  Company Number: US-AMGEN-USASP2010010399

PATIENT
  Age: 30 Year
  Sex: Female

DRUGS (1)
  1. ENBREL [Suspect]
     Indication: ARTHRITIS
     Dates: start: 20060421

REACTIONS (9)
  - JOINT SWELLING [None]
  - INJECTION SITE PAIN [None]
  - PARAESTHESIA [None]
  - JOINT EFFUSION [None]
  - FATIGUE [None]
  - IMMOBILE [None]
  - ASTHENIA [None]
  - PARALYSIS [None]
  - INJECTION SITE HAEMORRHAGE [None]
